FAERS Safety Report 5161988-7 (Version None)
Quarter: 2006Q4

REPORT INFORMATION
  Report Type: 
  Country: None (occurrence: None)
  Receive Date: 20061130
  Receipt Date: 20061109
  Transmission Date: 20070319
  Serious: Yes (Life-Threatening, Other)
  Sender: FDA-Public Use
  Company Number: JP-SANOFI-SYNTHELABO-A01200609767

PATIENT
  Sex: Female

DRUGS (11)
  1. CONCENTRATED HUMAN BLOOD PLATELET [Concomitant]
     Route: 041
     Dates: start: 20060812, end: 20060813
  2. MIRACLID [Concomitant]
     Route: 041
     Dates: start: 20060812, end: 20060816
  3. FOY [Concomitant]
     Route: 041
     Dates: start: 20060812, end: 20060818
  4. PRIMPERAN TAB [Concomitant]
     Indication: NAUSEA
     Dosage: 1 DF
     Route: 041
     Dates: start: 20060811, end: 20060811
  5. FAMOTIDINE [Concomitant]
     Indication: NAUSEA
     Route: 041
     Dates: start: 20060811, end: 20060811
  6. KYTRIL [Suspect]
     Route: 041
     Dates: start: 20051014, end: 20060811
  7. DECADRON [Suspect]
     Route: 041
     Dates: start: 20051014, end: 20060811
  8. FLUOROURACIL [Suspect]
     Dosage: 552 MG BOLUS FOLLOWED BY 828 MG INFUSION
     Route: 042
     Dates: start: 20060811, end: 20060812
  9. LEUCOVORIN CALCIUM [Suspect]
     Route: 042
     Dates: start: 20060811, end: 20060812
  10. OXALIPLATIN [Suspect]
     Indication: COLON CANCER
     Route: 042
     Dates: start: 20060811, end: 20060811
  11. ATARAX [Concomitant]
     Indication: NAUSEA
     Route: 041
     Dates: start: 20060811, end: 20060811

REACTIONS (7)
  - BLOOD CREATININE INCREASED [None]
  - DISSEMINATED INTRAVASCULAR COAGULATION [None]
  - HAEMOGLOBIN DECREASED [None]
  - LEUKOPENIA [None]
  - NEUTROPENIA [None]
  - THROMBOCYTOPENIA [None]
  - VOMITING [None]
